FAERS Safety Report 8217574-5 (Version None)
Quarter: 2012Q1

REPORT INFORMATION
  Report Type: 
  Country: None (occurrence: None)
  Receive Date: 20120319
  Receipt Date: 20120319
  Transmission Date: 20120608
  Serious: Yes (Other)
  Sender: FDA-Public Use
  Company Number: None

PATIENT
  Age: 15 Year
  Sex: Male
  Weight: 74.842 kg

DRUGS (2)
  1. QUETIAPINE [Concomitant]
     Indication: PSYCHOTIC DISORDER
     Dosage: 200MG
     Route: 048
     Dates: start: 20120101, end: 20120210
  2. DIVALPROEX EXTENDED-RELEASE [Suspect]
     Indication: AFFECTIVE DISORDER
     Dosage: 1000 MG
     Route: 048
     Dates: start: 20120130, end: 20120219

REACTIONS (5)
  - NORMOCHROMIC NORMOCYTIC ANAEMIA [None]
  - NEUTROPENIA [None]
  - BLOOD GLUCOSE INCREASED [None]
  - LEUKOPENIA [None]
  - EOSINOPHIL PERCENTAGE INCREASED [None]
